FAERS Safety Report 16237214 (Version 1)
Quarter: 2019Q2

REPORT INFORMATION
  Report Type: Spontaneous
  Country: US (occurrence: US)
  Receive Date: 20190320
  Receipt Date: 20190320
  Transmission Date: 20190711
  Serious: Yes (Life-Threatening)
  Sender: FDA-Public Use
  Company Number: None

PATIENT
  Age: 57 Year
  Sex: Female
  Weight: 58.97 kg

DRUGS (12)
  1. LANOXIN [Concomitant]
     Active Substance: DIGOXIN
  2. FISH OIL [Concomitant]
     Active Substance: FISH OIL
  3. D-3 [Concomitant]
     Active Substance: CHOLECALCIFEROL
  4. B-50 [Concomitant]
  5. ARMOLURTHYROID [Concomitant]
  6. POTASSIUM CHLORIDE. [Suspect]
     Active Substance: POTASSIUM CHLORIDE
  7. MAGNESIUM [Concomitant]
     Active Substance: MAGNESIUM
  8. COCONAT VIT. [Concomitant]
  9. POTASSIUM CHLORIDE. [Suspect]
     Active Substance: POTASSIUM CHLORIDE
     Indication: HYPOKALAEMIA
     Route: 048
  10. WARFARIN [Concomitant]
     Active Substance: WARFARIN
  11. PROBIOTIC/MILK THIRSTLE [Concomitant]
  12. CALCIUM [Concomitant]
     Active Substance: CALCIUM

REACTIONS (4)
  - Throat irritation [None]
  - Heart rate irregular [None]
  - Headache [None]
  - Product taste abnormal [None]

NARRATIVE: CASE EVENT DATE: 201812
